FAERS Safety Report 9410038 (Version 1)
Quarter: 2013Q3

REPORT INFORMATION
  Report Type: Spontaneous
  Country: US (occurrence: US)
  Receive Date: 20130719
  Receipt Date: 20130719
  Transmission Date: 20140515
  Serious: No
  Sender: FDA-Public Use
  Company Number: US-B.I. PHARMACEUTICALS,INC./RIDGEFIELD-2013-BI-20746BP

PATIENT
  Sex: Female
  Weight: 64 kg

DRUGS (16)
  1. COMBIVENT [Suspect]
     Indication: DYSPNOEA
     Dosage: STRENGTH: 18 MCG / 103 MCG; DAILY DOSE: 144 MCG / 824 MCG
     Route: 055
     Dates: start: 2000, end: 2010
  2. COMBIVENT [Suspect]
     Dosage: STRENGTH: 18 MCG / 103 MCG;
     Route: 055
     Dates: start: 2010
  3. HEPARIN [Concomitant]
     Indication: TUBULOINTERSTITIAL NEPHRITIS
     Route: 042
     Dates: start: 201207
  4. AMBIEN [Concomitant]
     Indication: INSOMNIA
     Route: 048
  5. QVAR [Concomitant]
     Indication: DYSPNOEA
     Route: 055
  6. LIDOCAINE GEL [Concomitant]
     Indication: VULVOVAGINAL PAIN
  7. DIAZEPAM [Concomitant]
     Indication: ANXIETY
     Route: 048
  8. CALCIUM [Concomitant]
     Dosage: STRENGTH: 1 TABLET, DAILY DOSE: 2 TABLET
     Route: 048
  9. GELUSIL [Concomitant]
     Indication: GASTROOESOPHAGEAL REFLUX DISEASE
     Dosage: STRENGTH: 2 TABLETS
     Route: 048
  10. SOLUMEDROL [Concomitant]
     Indication: TUBULOINTERSTITIAL NEPHRITIS
     Route: 042
     Dates: start: 201207
  11. CENTRUM [Concomitant]
     Dosage: STRENGTH: 1 TABLET; DAILY DOSE: 1 TABLET
     Route: 048
  12. ASPIRIN [Concomitant]
     Indication: CARDIAC DISORDER
     Dosage: 81 MG
     Route: 048
  13. ACIDOPHILUS [Concomitant]
     Dosage: STRENGTH: 1 CAPSULE; DAILY DOSE: 2 CAPSULES
     Route: 048
  14. RESTASIS EMULSION EYE DROPS [Concomitant]
     Indication: DRY EYE
     Dosage: STRENGTH: 1 DROP; DAILY DOSE: 4 DROPS
  15. SELENIUM [Concomitant]
     Dosage: STRENGTH: 1 CAPSULE; DAILY DOSE: 1 CAPSULE
     Route: 048
  16. VAGIFEM [Concomitant]
     Indication: VULVOVAGINAL PAIN

REACTIONS (4)
  - Off label use [Not Recovered/Not Resolved]
  - Blood pressure increased [Not Recovered/Not Resolved]
  - Palpitations [Not Recovered/Not Resolved]
  - Oral discomfort [Not Recovered/Not Resolved]
